FAERS Safety Report 9699400 (Version 2)
Quarter: 2013Q4

REPORT INFORMATION
  Report Type: Spontaneous
  Country: US (occurrence: US)
  Receive Date: 20131120
  Receipt Date: 20131120
  Transmission Date: 20140711
  Serious: No
  Sender: FDA-Public Use
  Company Number: US-TEVA-362362USA

PATIENT
  Sex: Female

DRUGS (2)
  1. PARAGARD 380A [Suspect]
     Indication: CONTRACEPTION
     Route: 015
     Dates: start: 20120813, end: 20120925
  2. VIT^S [Concomitant]

REACTIONS (2)
  - Pelvic pain [Recovered/Resolved]
  - Metrorrhagia [Recovered/Resolved]
